FAERS Safety Report 25760251 (Version 1)
Quarter: 2025Q3

REPORT INFORMATION
  Report Type: Spontaneous
  Country: US (occurrence: None)
  Receive Date: 20250903
  Receipt Date: 20250903
  Transmission Date: 20251020
  Serious: No
  Sender: FDA-CTU
  Company Number: None

PATIENT
  Age: 40 Year
  Sex: Female

DRUGS (1)
  1. EBGLYSS [Suspect]
     Active Substance: LEBRIKIZUMAB-LBKZ
     Indication: Dermatitis atopic
     Dosage: INJECT 250MG (1 PEN) SUBCUTANEOUSLY EVERY 2 WEEKS  STARTING AT WEEK 4 UP TO WEEK 16 AS
     Route: 058
     Dates: start: 202506

REACTIONS (1)
  - Nephrolithiasis [None]
